FAERS Safety Report 17201358 (Version 2)
Quarter: 2020Q1

REPORT INFORMATION
  Report Type: Spontaneous
  Country: JP (occurrence: JP)
  Receive Date: 20191226
  Receipt Date: 20200313
  Transmission Date: 20200409
  Serious: Yes (Hospitalization)
  Sender: FDA-Public Use
  Company Number: JP-SAKK-2019SA356098AA

PATIENT
  Age: 56 Year
  Sex: Male

DRUGS (4)
  1. PREDONINE [Concomitant]
     Active Substance: PREDNISOLONE
     Indication: PRODUCT USED FOR UNKNOWN INDICATION
     Dosage: 5 MG, BIW
     Route: 048
  2. MONTELUKAST [MONTELUKAST SODIUM] [Concomitant]
     Active Substance: MONTELUKAST SODIUM
     Indication: PRODUCT USED FOR UNKNOWN INDICATION
     Dosage: 5 MG, QD
     Route: 065
  3. DUPIXENT [Suspect]
     Active Substance: DUPILUMAB
     Indication: ASTHMA
     Dosage: 300 MG, QOW
     Route: 058
     Dates: start: 20191018, end: 20191129
  4. SYMBICORT [Concomitant]
     Active Substance: BUDESONIDE\FORMOTEROL FUMARATE DIHYDRATE
     Indication: PRODUCT USED FOR UNKNOWN INDICATION
     Dosage: 8 INHALATIONS/DAY
     Route: 055

REACTIONS (3)
  - Myalgia [Not Recovered/Not Resolved]
  - Arthralgia [Not Recovered/Not Resolved]
  - Pyrexia [Recovered/Resolved]

NARRATIVE: CASE EVENT DATE: 20191220
